FAERS Safety Report 4724312-7 (Version None)
Quarter: 2005Q3

REPORT INFORMATION
  Report Type: 
  Country: None (occurrence: None)
  Receive Date: 20050722
  Receipt Date: 20050712
  Transmission Date: 20060218
  Serious: Yes (Hospitalization)
  Sender: FDA-Public Use
  Company Number: A-CH2005-09775

PATIENT
  Age: 46 Year
  Sex: Female

DRUGS (11)
  1. TRACLEER [Suspect]
     Indication: SCLERODERMA
     Dosage: 62.5 MG, BID, ORAL; 125 MG, BID, ORAL
     Route: 048
  2. SANDOSTATIN [Suspect]
     Indication: SCLERODERMA
  3. FONZYLANE (BUFLOMEDIL HYDROCHLORIDE) [Concomitant]
  4. ERYTHROMYCIN [Concomitant]
  5. PANTOPRAZOLE SODIUM [Concomitant]
  6. LEVOTHYROXINE SODIUM [Concomitant]
  7. POTASSIUM CHLORIDE [Concomitant]
  8. GAVISCON [Concomitant]
  9. MOVICOL (POTASSIUM CHLORIDE, SODIUM BICARBONATE, MACROGOL, SODIUM CHLO [Concomitant]
  10. DEBRIDAT   JOUVEINAL  (TRIMEBUTINE MALEATE) [Concomitant]
  11. CIPROFLOXACIN [Concomitant]

REACTIONS (9)
  - ABSCESS [None]
  - ARTHRALGIA [None]
  - CUTANEOUS VASCULITIS [None]
  - DISEASE RECURRENCE [None]
  - PAIN [None]
  - PYREXIA [None]
  - SKIN DISORDER [None]
  - SUBCUTANEOUS NODULE [None]
  - VASCULAR PURPURA [None]
